FAERS Safety Report 16965116 (Version 1)
Quarter: 2019Q4

REPORT INFORMATION
  Report Type: Spontaneous
  Country: GB (occurrence: GB)
  Receive Date: 20191028
  Receipt Date: 20191028
  Transmission Date: 20200122
  Serious: Yes (Hospitalization, Other)
  Sender: FDA-Public Use
  Company Number: GB-SCIEGEN PHARMACEUTICALS INC-2019SCILIT00297

PATIENT
  Age: 28 Year
  Sex: Male

DRUGS (4)
  1. INSULIN [Interacting]
     Active Substance: INSULIN NOS
  2. ARIPIPRAZOLE. [Suspect]
     Active Substance: ARIPIPRAZOLE
  3. OLANZAPINE. [Concomitant]
     Active Substance: OLANZAPINE
  4. METFORMIN [Interacting]
     Active Substance: METFORMIN HYDROCHLORIDE

REACTIONS (4)
  - Diabetic ketoacidosis [Unknown]
  - Schizophrenia [Recovering/Resolving]
  - Type 2 diabetes mellitus [Unknown]
  - Hyperglycaemia [Unknown]
